FAERS Safety Report 10398182 (Version 1)
Quarter: 2014Q3

REPORT INFORMATION
  Report Type: Spontaneous
  Country: US (occurrence: None)
  Receive Date: 20140818
  Receipt Date: 20140818
  Transmission Date: 20150326
  Serious: Yes (Other)
  Sender: FDA-Public Use
  Company Number: None

PATIENT
  Age: 50 Year
  Sex: Female
  Weight: 61.24 kg

DRUGS (3)
  1. ESTRADIOL. [Suspect]
     Active Substance: ESTRADIOL
     Indication: MENOPAUSAL SYMPTOMS
     Dosage: 1 PILL DAILY QD ORAL
     Route: 048
     Dates: start: 20140701, end: 20140814
  2. ESTRADIOL. [Suspect]
     Active Substance: ESTRADIOL
     Indication: HOT FLUSH
     Dosage: 1 PILL DAILY QD ORAL
     Route: 048
     Dates: start: 20140701, end: 20140814
  3. ESTRADIOL. [Suspect]
     Active Substance: ESTRADIOL
     Indication: HORMONE REPLACEMENT THERAPY
     Dosage: 1 PILL DAILY QD ORAL
     Route: 048
     Dates: start: 20140701, end: 20140814

REACTIONS (4)
  - Abdominal distension [None]
  - Product quality issue [None]
  - Product substitution issue [None]
  - Hot flush [None]

NARRATIVE: CASE EVENT DATE: 20140814
